FAERS Safety Report 5786905-8 (Version None)
Quarter: 2008Q2

REPORT INFORMATION
  Report Type: 
  Country: None (occurrence: None)
  Receive Date: 20080623
  Receipt Date: 20080623
  Transmission Date: 20081010
  Serious: No
  Sender: FDA-Public Use
  Company Number: None

PATIENT
  Age: 60 Year
  Sex: Female
  Weight: 85.2762 kg

DRUGS (1)
  1. BALSALAZIDE DISODIUM [Suspect]
     Dosage: 750MG 3 TABS TID PO
     Route: 048

REACTIONS (4)
  - ABDOMINAL PAIN [None]
  - ABDOMINAL PAIN LOWER [None]
  - INFLAMMATION [None]
  - PHARMACEUTICAL PRODUCT COMPLAINT [None]
